FAERS Safety Report 24212235 (Version 1)
Quarter: 2024Q3

REPORT INFORMATION
  Report Type: Spontaneous
  Country: US (occurrence: US)
  Receive Date: 20240815
  Receipt Date: 20240815
  Transmission Date: 20241016
  Serious: No
  Sender: SANOFI AVENTIS
  Company Number: US-SA-SAC20240813000775

PATIENT
  Age: 73 Year
  Sex: Female
  Weight: 122 kg

DRUGS (1)
  1. DUPIXENT [Suspect]
     Active Substance: DUPILUMAB
     Indication: Dermatitis atopic
     Dosage: 300 MG (1 PEN), QOW
     Route: 058
     Dates: start: 20240422

REACTIONS (3)
  - Headache [Recovered/Resolved]
  - Skin discolouration [Unknown]
  - Skin haemorrhage [Unknown]

NARRATIVE: CASE EVENT DATE: 20240101
